FAERS Safety Report 4839552-6 (Version None)
Quarter: 2005Q4

REPORT INFORMATION
  Report Type: 
  Country: None (occurrence: None)
  Receive Date: 20051128
  Receipt Date: 20051128
  Transmission Date: 20060501
  Serious: No
  Sender: FDA-Public Use
  Company Number: None

PATIENT
  Sex: Female
  Weight: 81.6475 kg

DRUGS (2)
  1. PEGASYS [Suspect]
     Indication: HEPATITIS C
     Dosage: 1200 MG    ONCE PER WEEK   SQ
     Route: 058
     Dates: start: 20030301, end: 20040301
  2. COPEGUS [Suspect]
     Indication: HEPATITIS C
     Dosage: 1200MG    TWICE DAILY, 3 PILL   PO
     Route: 048
     Dates: start: 20030301, end: 20040301

REACTIONS (2)
  - FIBROMYALGIA [None]
  - RAYNAUD'S PHENOMENON [None]
